FAERS Safety Report 17687990 (Version 1)
Quarter: 2020Q2

REPORT INFORMATION
  Report Type: Report from Study
  Country: US (occurrence: US)
  Receive Date: 20200421
  Receipt Date: 20200421
  Transmission Date: 20200714
  Serious: Yes (Hospitalization)
  Sender: FDA-Public Use
  Company Number: US-MYLANLABS-2020M1039288

PATIENT
  Age: 155 Month

DRUGS (14)
  1. METHOTREXATE. [Suspect]
     Active Substance: METHOTREXATE
     Indication: CENTRAL NERVOUS SYSTEM NEOPLASM
     Dosage: HIGH-DOSE
     Route: 042
  2. VINCRISTINE [Concomitant]
     Active Substance: VINCRISTINE
     Indication: SOFT TISSUE SARCOMA
  3. LEUCOVORIN                         /00566701/ [Concomitant]
     Active Substance: LEUCOVORIN
     Indication: CENTRAL NERVOUS SYSTEM NEOPLASM
     Dosage: 10 MG/M2 Q6H STARTING AT 24 HOURS...
     Route: 065
  4. LEUCOVORIN                         /00566701/ [Concomitant]
     Active Substance: LEUCOVORIN
     Indication: SOFT TISSUE SARCOMA
  5. CISPLATIN. [Concomitant]
     Active Substance: CISPLATIN
     Indication: CENTRAL NERVOUS SYSTEM NEOPLASM
     Dosage: ON DAY C
     Route: 065
  6. FILGRASTIM [Concomitant]
     Active Substance: FILGRASTIM
     Indication: NEUTROPHIL COUNT
     Dosage: STARTED THE DAY AFTER COMPLETION OF DAY C CHEMOTHERAPY.
     Route: 065
  7. ETOPOSIDE. [Concomitant]
     Active Substance: ETOPOSIDE
     Indication: CENTRAL NERVOUS SYSTEM NEOPLASM
     Dosage: ON DAYS A, B, AND C,
     Route: 065
  8. VINCRISTINE [Concomitant]
     Active Substance: VINCRISTINE
     Indication: CENTRAL NERVOUS SYSTEM NEOPLASM
     Dosage: ON DAY 1, DAY 8 AND ......
     Route: 065
  9. CYCLOPHOSPHAMIDE. [Concomitant]
     Active Substance: CYCLOPHOSPHAMIDE
     Indication: CENTRAL NERVOUS SYSTEM NEOPLASM
     Dosage: ON DAYS A AND B
     Route: 065
  10. CYCLOPHOSPHAMIDE. [Concomitant]
     Active Substance: CYCLOPHOSPHAMIDE
     Indication: SOFT TISSUE SARCOMA
  11. ETOPOSIDE. [Concomitant]
     Active Substance: ETOPOSIDE
     Indication: SOFT TISSUE SARCOMA
  12. CISPLATIN. [Concomitant]
     Active Substance: CISPLATIN
     Indication: SOFT TISSUE SARCOMA
  13. MESNA. [Concomitant]
     Active Substance: MESNA
     Indication: BLADDER REPAIR
     Dosage: GIVEN AT 100% OF THE DAILY CYCLOPHOSPHAMIDE DOSE ON DAYS A AND B
     Route: 065
  14. METHOTREXATE. [Suspect]
     Active Substance: METHOTREXATE
     Indication: SOFT TISSUE SARCOMA

REACTIONS (1)
  - Central nervous system necrosis [Unknown]
